FAERS Safety Report 17805163 (Version 1)
Quarter: 2020Q2

REPORT INFORMATION
  Report Type: Spontaneous
  Country: US (occurrence: US)
  Receive Date: 20200520
  Receipt Date: 20200520
  Transmission Date: 20200714
  Serious: No
  Sender: FDA-Public Use
  Company Number: US-LUPIN PHARMACEUTICALS INC.-2019-05379

PATIENT
  Age: 25 Year
  Sex: Male

DRUGS (3)
  1. ABILIFY [Concomitant]
     Active Substance: ARIPIPRAZOLE
     Indication: OBSESSIVE-COMPULSIVE DISORDER
     Route: 065
  2. QUETIAPINE TABLETS USP, 200 MG [Suspect]
     Active Substance: QUETIAPINE FUMARATE
     Indication: TARDIVE DYSKINESIA
     Dosage: UNK UNK, BID (200MG IN AM, 400MG AT NIGHT)
     Route: 065
  3. ABILIFY [Concomitant]
     Active Substance: ARIPIPRAZOLE
     Indication: INTRUSIVE THOUGHTS

REACTIONS (1)
  - Lip disorder [Unknown]
